FAERS Safety Report 12295010 (Version 1)
Quarter: 2016Q2

REPORT INFORMATION
  Report Type: Spontaneous
  Country: US (occurrence: US)
  Receive Date: 20160422
  Receipt Date: 20160422
  Transmission Date: 20160815
  Serious: No
  Sender: FDA-Public Use
  Company Number: US-TEVA-647611ACC

PATIENT
  Age: 33 Year
  Sex: Female
  Weight: 77.63 kg

DRUGS (4)
  1. IRON [Concomitant]
     Active Substance: IRON
  2. MULTIVITAMINS [Concomitant]
     Active Substance: VITAMINS
  3. PARAGARD T 380A [Suspect]
     Active Substance: COPPER
     Indication: CONTRACEPTION
     Dates: start: 20160209, end: 20160325
  4. MOTRIN [Concomitant]
     Active Substance: IBUPROFEN

REACTIONS (2)
  - Device expulsion [Recovered/Resolved]
  - Thrombosis [Unknown]

NARRATIVE: CASE EVENT DATE: 20160324
